FAERS Safety Report 4485054-9 (Version None)
Quarter: 2004Q4

REPORT INFORMATION
  Report Type: 
  Country: None (occurrence: None)
  Receive Date: 20041022
  Receipt Date: 20041022
  Transmission Date: 20050328
  Serious: Yes (Life-Threatening)
  Sender: FDA-Public Use
  Company Number: None

PATIENT
  Age: 73 Year
  Sex: Female
  Weight: 58.9 kg

DRUGS (10)
  1. VANCOMYCIN [Suspect]
     Indication: DIALYSIS
     Dosage: 1 GRAM 1 TIME INTRAVENOU
     Route: 042
     Dates: start: 20041018, end: 20041018
  2. VANCOMYCIN [Suspect]
     Indication: DIALYSIS
     Dosage: 1 GRAM 1 TIME INTRAVENOU
     Route: 042
     Dates: start: 20041018, end: 20041018
  3. ADVIR [Concomitant]
  4. CLINDAMYCIN HCL [Concomitant]
  5. GATIFLOXACIN [Concomitant]
  6. LATANOPROST [Concomitant]
  7. SINGULAIR [Concomitant]
  8. NEPHROCAPS [Concomitant]
  9. FAMOTIDINE [Concomitant]
  10. DILTIAZEM [Concomitant]

REACTIONS (2)
  - CARDIO-RESPIRATORY ARREST [None]
  - COMA [None]
